FAERS Safety Report 8444703-0 (Version None)
Quarter: 2012Q2

REPORT INFORMATION
  Report Type: 
  Country: None (occurrence: None)
  Receive Date: 20120618
  Receipt Date: 20120330
  Transmission Date: 20120825
  Serious: Yes (Hospitalization)
  Sender: FDA-Public Use
  Company Number: JP-SANOFI-AVENTIS-2011SA084220

PATIENT
  Age: 27 Year
  Sex: Female
  Weight: 53.25 kg

DRUGS (9)
  1. RITODRINE HYDROCHLORIDE [Concomitant]
     Dosage: RITODRINE HYDROCHLORIDE 2A (20ML/H)
     Dates: start: 20111213
  2. KAMIKIHITOU [Concomitant]
     Indication: AUTONOMIC NERVOUS SYSTEM IMBALANCE
     Dates: start: 20100101
  3. DEPAS [Concomitant]
     Indication: AUTONOMIC NERVOUS SYSTEM IMBALANCE
     Dates: start: 20100101
  4. ROHYPNOL [Concomitant]
     Indication: AUTONOMIC NERVOUS SYSTEM IMBALANCE
     Dates: start: 20100101
  5. SEROQUEL [Suspect]
     Indication: AUTONOMIC NERVOUS SYSTEM IMBALANCE
     Route: 048
     Dates: start: 20110101, end: 20111217
  6. BLONANSERIN [Concomitant]
     Indication: AUTONOMIC NERVOUS SYSTEM IMBALANCE
     Route: 048
     Dates: start: 20100101
  7. ZOLPIDEM [Suspect]
     Indication: AUTONOMIC NERVOUS SYSTEM IMBALANCE
     Route: 048
     Dates: start: 20100101, end: 20111217
  8. LORAZEPAM [Concomitant]
     Indication: AUTONOMIC NERVOUS SYSTEM IMBALANCE
     Dates: start: 20100101
  9. PRIMPERAN TAB [Suspect]
     Route: 065
     Dates: start: 20110615, end: 20110616

REACTIONS (4)
  - VOMITING [None]
  - MATERNAL EXPOSURE DURING PREGNANCY [None]
  - THREATENED LABOUR [None]
  - OFF LABEL USE [None]
